FAERS Safety Report 13880176 (Version 1)
Quarter: 2017Q3

REPORT INFORMATION
  Report Type: Spontaneous
  Country: CA (occurrence: CA)
  Receive Date: 20170818
  Receipt Date: 20170818
  Transmission Date: 20171127
  Serious: Yes (Other)
  Sender: FDA-Public Use
  Company Number: CA-009507513-1708CAN005466

PATIENT
  Age: 72 Year
  Sex: Male
  Weight: 55 kg

DRUGS (9)
  1. ATROVENT HFA [Concomitant]
     Active Substance: IPRATROPIUM BROMIDE
     Dosage: METERED-DOSE (AEROSOL)
  2. CUBICIN [Suspect]
     Active Substance: DAPTOMYCIN
     Indication: ABSCESS NECK
  3. ROSUVASTATIN. [Concomitant]
     Active Substance: ROSUVASTATIN
  4. CUBICIN [Suspect]
     Active Substance: DAPTOMYCIN
     Indication: STAPHYLOCOCCAL BACTERAEMIA
     Dosage: 500 MG, Q24H
     Route: 042
  5. INVANZ [Concomitant]
     Active Substance: ERTAPENEM SODIUM
     Route: 030
  6. FLOVENT HFA [Concomitant]
     Active Substance: FLUTICASONE PROPIONATE
     Dosage: METERED-DOSE (AEROSOL)
  7. METOPROLOL. [Concomitant]
     Active Substance: METOPROLOL
  8. SALBUTAMOL SANDOZ (ALBUTEROL) [Concomitant]
     Dosage: METERED-DOSE (AEROSOL)
  9. TAMSULOSIN HYDROCHLORIDE. [Concomitant]
     Active Substance: TAMSULOSIN HYDROCHLORIDE

REACTIONS (5)
  - Musculoskeletal stiffness [Unknown]
  - Myalgia [Unknown]
  - Pain [Unknown]
  - Blood creatine phosphokinase increased [Unknown]
  - Myopathy [Unknown]
